FAERS Safety Report 21599161 (Version 4)
Quarter: 2022Q4

REPORT INFORMATION
  Report Type: Spontaneous
  Country: ES (occurrence: ES)
  Receive Date: 20221115
  Receipt Date: 20221206
  Transmission Date: 20230112
  Serious: Yes (Hospitalization, Disabling, Other)
  Sender: FDA-Public Use
  Company Number: ES-ABBVIE-22K-144-4528412-00

PATIENT
  Age: 41 Year
  Sex: Female
  Weight: 80 kg

DRUGS (2)
  1. ADALIMUMAB [Suspect]
     Active Substance: ADALIMUMAB
     Indication: Crohn^s disease
     Route: 058
     Dates: start: 20181108, end: 20190404
  2. MESALAMINE [Concomitant]
     Active Substance: MESALAMINE
     Indication: Product used for unknown indication
     Route: 065

REACTIONS (16)
  - Colonic abscess [Recovered/Resolved]
  - Intestinal fistula [Recovered/Resolved]
  - Intestinal fistula [Recovered/Resolved]
  - Colonic abscess [Recovered/Resolved]
  - Inflammatory pain [Unknown]
  - Colonic abscess [Unknown]
  - Off label use [Unknown]
  - Colonic abscess [Unknown]
  - Anaemia [Unknown]
  - Faecal calprotectin increased [Unknown]
  - Colonic fistula [Unknown]
  - Gastrointestinal fistula [Unknown]
  - Therapeutic product effect decreased [Unknown]
  - Hydronephrosis [Unknown]
  - Renal atrophy [Unknown]
  - Groin abscess [Unknown]

NARRATIVE: CASE EVENT DATE: 20181101
